FAERS Safety Report 19200217 (Version 2)
Quarter: 2021Q3

REPORT INFORMATION
  Report Type: Spontaneous
  Country: JP (occurrence: JP)
  Receive Date: 20210430
  Receipt Date: 20210721
  Transmission Date: 20211014
  Serious: Yes (Other)
  Sender: FDA-Public Use
  Company Number: NVSJ2021JP006399

PATIENT
  Age: 72 Year
  Sex: Male

DRUGS (10)
  1. NEORAL [Suspect]
     Active Substance: CYCLOSPORINE
     Indication: IDIOPATHIC PULMONARY FIBROSIS
     Dosage: 150 MG
     Route: 065
  2. NEORAL [Suspect]
     Active Substance: CYCLOSPORINE
     Dosage: 50 MG
     Route: 065
  3. PREDNISOLONE. [Suspect]
     Active Substance: PREDNISOLONE
     Indication: PRODUCT USED FOR UNKNOWN INDICATION
     Dosage: 30 MG
     Route: 065
  4. PREDNISOLONE. [Suspect]
     Active Substance: PREDNISOLONE
     Dosage: 20 MG
     Route: 065
  5. PREDNISOLONE. [Suspect]
     Active Substance: PREDNISOLONE
     Dosage: 10 MG
     Route: 065
  6. PIRFENIDONE. [Concomitant]
     Active Substance: PIRFENIDONE
     Indication: PRODUCT USED FOR UNKNOWN INDICATION
     Dosage: 800 MG
     Route: 065
  7. PIRFENIDONE. [Concomitant]
     Active Substance: PIRFENIDONE
     Dosage: 1200 MG
     Route: 065
  8. NEORAL [Suspect]
     Active Substance: CYCLOSPORINE
     Dosage: 150 MG
     Route: 065
  9. NEORAL [Suspect]
     Active Substance: CYCLOSPORINE
     Dosage: 200 MG
     Route: 065
  10. NEORAL [Suspect]
     Active Substance: CYCLOSPORINE
     Dosage: 100 MG
     Route: 065

REACTIONS (2)
  - Product use in unapproved indication [Unknown]
  - Lung squamous cell carcinoma stage I [Unknown]
